FAERS Safety Report 13849036 (Version 1)
Quarter: 2017Q3

REPORT INFORMATION
  Report Type: Spontaneous
  Country: US (occurrence: US)
  Receive Date: 20170809
  Receipt Date: 20170809
  Transmission Date: 20171127
  Serious: No
  Sender: FDA-Public Use
  Company Number: PHEH2017US024033

PATIENT
  Age: 57 Year
  Sex: Female

DRUGS (1)
  1. RECLAST [Suspect]
     Active Substance: ZOLEDRONIC ACID
     Indication: PRODUCT USED FOR UNKNOWN INDICATION
     Dosage: 5 MG/100 CC
     Route: 041
     Dates: start: 20170731

REACTIONS (4)
  - Feeling hot [Unknown]
  - Body temperature increased [Recovering/Resolving]
  - Influenza like illness [Unknown]
  - Pain [Unknown]

NARRATIVE: CASE EVENT DATE: 20170731
